FAERS Safety Report 24055701 (Version 1)
Quarter: 2024Q3

REPORT INFORMATION
  Report Type: Spontaneous
  Country: US (occurrence: None)
  Receive Date: 20240703
  Receipt Date: 20240703
  Transmission Date: 20241016
  Serious: Yes (unspecified)
  Sender: Public
  Company Number: None

PATIENT
  Age: 34 Year
  Sex: Female

DRUGS (1)
  1. VENOFER [Suspect]
     Active Substance: IRON SUCROSE

REACTIONS (11)
  - Pruritus [None]
  - Pruritus [None]
  - Rash [None]
  - Urticaria [None]
  - Muscle spasms [None]
  - Sensory disturbance [None]
  - Dizziness [None]
  - Eye movement disorder [None]
  - Pallor [None]
  - Dysphagia [None]
  - Infusion related reaction [None]

NARRATIVE: CASE EVENT DATE: 20240517
